FAERS Safety Report 25938272 (Version 1)
Quarter: 2025Q4

REPORT INFORMATION
  Report Type: Spontaneous
  Country: GB (occurrence: GB)
  Receive Date: 20251018
  Receipt Date: 20251018
  Transmission Date: 20260118
  Serious: Yes (Other)
  Sender: ABBVIE
  Company Number: None

PATIENT
  Age: 37 Year
  Sex: Female
  Weight: 49 kg

DRUGS (2)
  1. DALBAVANCIN [Suspect]
     Active Substance: DALBAVANCIN
     Indication: Osteomyelitis
     Dosage: 1.5G DOSE INFUSION VIA A CANNULA
     Route: 042
     Dates: start: 20251016, end: 20251016
  2. DALBAVANCIN [Suspect]
     Active Substance: DALBAVANCIN
     Indication: Osteomyelitis
     Dosage: 1.5G DOSE INFUSION VIA A CANNULA
     Route: 042
     Dates: start: 202508

REACTIONS (2)
  - Chest discomfort [Recovered/Resolved]
  - Vomiting [Unknown]

NARRATIVE: CASE EVENT DATE: 20251016
